FAERS Safety Report 25638313 (Version 1)
Quarter: 2025Q3

REPORT INFORMATION
  Report Type: Spontaneous
  Country: EU (occurrence: EU)
  Receive Date: 20250804
  Receipt Date: 20250804
  Transmission Date: 20251020
  Serious: Yes (Life-Threatening, Hospitalization, Other)
  Sender: MYLAN
  Company Number: EU-SA-2020SA362543

PATIENT
  Age: 62 Year
  Sex: Male

DRUGS (32)
  1. DOCETAXEL [Suspect]
     Active Substance: DOCETAXEL
     Indication: Prostate cancer
     Dosage: 75 MILLIGRAM/SQ. METER, Q3W
     Dates: start: 201412, end: 201412
  2. DOCETAXEL [Suspect]
     Active Substance: DOCETAXEL
     Indication: Hormone-refractory prostate cancer
     Dosage: 75 MILLIGRAM/SQ. METER, Q3W
     Dates: start: 201412, end: 201412
  3. DOCETAXEL [Suspect]
     Active Substance: DOCETAXEL
     Dosage: 75 MILLIGRAM/SQ. METER, Q3W
     Route: 042
     Dates: start: 201412, end: 201412
  4. DOCETAXEL [Suspect]
     Active Substance: DOCETAXEL
     Dosage: 75 MILLIGRAM/SQ. METER, Q3W
     Route: 042
     Dates: start: 201412, end: 201412
  5. DOCETAXEL [Suspect]
     Active Substance: DOCETAXEL
     Dosage: 75 MILLIGRAM/SQ. METER, Q3W
     Dates: start: 201407, end: 201407
  6. DOCETAXEL [Suspect]
     Active Substance: DOCETAXEL
     Dosage: 75 MILLIGRAM/SQ. METER, Q3W
     Dates: start: 201407, end: 201407
  7. DOCETAXEL [Suspect]
     Active Substance: DOCETAXEL
     Dosage: 75 MILLIGRAM/SQ. METER, Q3W
     Route: 042
     Dates: start: 201407, end: 201407
  8. DOCETAXEL [Suspect]
     Active Substance: DOCETAXEL
     Dosage: 75 MILLIGRAM/SQ. METER, Q3W
     Route: 042
     Dates: start: 201407, end: 201407
  9. CABAZITAXEL [Suspect]
     Active Substance: CABAZITAXEL
     Indication: Disease progression
     Dosage: 25 MILLIGRAM/SQ. METER, Q3W
  10. CABAZITAXEL [Suspect]
     Active Substance: CABAZITAXEL
     Dosage: 25 MILLIGRAM/SQ. METER, Q3W
  11. CABAZITAXEL [Suspect]
     Active Substance: CABAZITAXEL
     Dosage: 25 MILLIGRAM/SQ. METER, Q3W
     Route: 042
  12. CABAZITAXEL [Suspect]
     Active Substance: CABAZITAXEL
     Dosage: 25 MILLIGRAM/SQ. METER, Q3W
     Route: 042
  13. CABAZITAXEL [Suspect]
     Active Substance: CABAZITAXEL
     Dosage: 25 MILLIGRAM/SQ. METER, Q3W
     Dates: start: 201510, end: 201510
  14. CABAZITAXEL [Suspect]
     Active Substance: CABAZITAXEL
     Dosage: 25 MILLIGRAM/SQ. METER, Q3W
     Dates: start: 201510, end: 201510
  15. CABAZITAXEL [Suspect]
     Active Substance: CABAZITAXEL
     Dosage: 25 MILLIGRAM/SQ. METER, Q3W
     Route: 042
     Dates: start: 201510, end: 201510
  16. CABAZITAXEL [Suspect]
     Active Substance: CABAZITAXEL
     Dosage: 25 MILLIGRAM/SQ. METER, Q3W
     Route: 042
     Dates: start: 201510, end: 201510
  17. ZOLEDRONIC ACID [Concomitant]
     Active Substance: ZOLEDRONIC ACID
     Indication: Metastatic bone disease prophylaxis
  18. ZOLEDRONIC ACID [Concomitant]
     Active Substance: ZOLEDRONIC ACID
     Indication: Prophylaxis
     Route: 065
  19. ZOLEDRONIC ACID [Concomitant]
     Active Substance: ZOLEDRONIC ACID
     Route: 065
  20. ZOLEDRONIC ACID [Concomitant]
     Active Substance: ZOLEDRONIC ACID
  21. LIPEGFILGRASTIM [Concomitant]
     Active Substance: LIPEGFILGRASTIM
     Indication: Prophylaxis
  22. LIPEGFILGRASTIM [Concomitant]
     Active Substance: LIPEGFILGRASTIM
     Route: 058
  23. LIPEGFILGRASTIM [Concomitant]
     Active Substance: LIPEGFILGRASTIM
     Route: 058
  24. LIPEGFILGRASTIM [Concomitant]
     Active Substance: LIPEGFILGRASTIM
  25. LEUPROLIDE [Concomitant]
     Active Substance: LEUPROLIDE
     Indication: Prostate cancer
     Dosage: 22.5 MILLIGRAM, Q3MONTHS (EVERY THREE MONTHS, UNTIL MID-2014)
     Dates: start: 200502, end: 2014
  26. LEUPROLIDE [Concomitant]
     Active Substance: LEUPROLIDE
     Dosage: 22.5 MILLIGRAM, Q3MONTHS (EVERY THREE MONTHS, UNTIL MID-2014)
     Dates: start: 200502, end: 2014
  27. LEUPROLIDE [Concomitant]
     Active Substance: LEUPROLIDE
     Dosage: 22.5 MILLIGRAM, Q3MONTHS (EVERY THREE MONTHS, UNTIL MID-2014)
     Route: 058
     Dates: start: 200502, end: 2014
  28. LEUPROLIDE [Concomitant]
     Active Substance: LEUPROLIDE
     Dosage: 22.5 MILLIGRAM, Q3MONTHS (EVERY THREE MONTHS, UNTIL MID-2014)
     Route: 058
     Dates: start: 200502, end: 2014
  29. LEUPROLIDE [Concomitant]
     Active Substance: LEUPROLIDE
  30. LEUPROLIDE [Concomitant]
     Active Substance: LEUPROLIDE
  31. LEUPROLIDE [Concomitant]
     Active Substance: LEUPROLIDE
     Route: 058
  32. LEUPROLIDE [Concomitant]
     Active Substance: LEUPROLIDE
     Route: 058

REACTIONS (8)
  - Peripheral artery occlusion [Recovering/Resolving]
  - Peripheral arterial occlusive disease [Recovering/Resolving]
  - Pain [Recovering/Resolving]
  - Alopecia [Unknown]
  - Anaemia [Unknown]
  - Fatigue [Unknown]
  - Nausea [Unknown]
  - Peripheral swelling [Unknown]

NARRATIVE: CASE EVENT DATE: 20140101
